FAERS Safety Report 13867555 (Version 7)
Quarter: 2017Q4

REPORT INFORMATION
  Report Type: Report from Study
  Country: US (occurrence: US)
  Receive Date: 20170814
  Receipt Date: 20171114
  Transmission Date: 20180320
  Serious: Yes (Other)
  Sender: FDA-Public Use
  Company Number: US-ACADIA PHARMACEUTICALS INC.-ACA-2017-004823

PATIENT
  Age: 67 Year
  Sex: Female

DRUGS (4)
  1. NUPLAZID [Suspect]
     Active Substance: PIMAVANSERIN TARTRATE
     Indication: PARKINSON^S DISEASE
  2. NUPLAZID [Suspect]
     Active Substance: PIMAVANSERIN TARTRATE
     Indication: HALLUCINATION
     Dosage: 34 MG, QD
     Route: 048
  3. NUPLAZID [Suspect]
     Active Substance: PIMAVANSERIN TARTRATE
     Indication: PARKINSON^S DISEASE PSYCHOSIS
     Dosage: 34 MG, QD
     Route: 048
     Dates: start: 201707
  4. NUPLAZID [Suspect]
     Active Substance: PIMAVANSERIN TARTRATE
     Indication: DELUSION

REACTIONS (20)
  - Sluggishness [Unknown]
  - Urinary tract infection [Unknown]
  - Back pain [Unknown]
  - Somnolence [Unknown]
  - Decreased appetite [Unknown]
  - Confusional state [Not Recovered/Not Resolved]
  - Memory impairment [Not Recovered/Not Resolved]
  - Dizziness [Unknown]
  - Constipation [Unknown]
  - Abdominal discomfort [Recovered/Resolved]
  - Nervousness [Unknown]
  - Suprapubic pain [Recovered/Resolved]
  - Alopecia [Unknown]
  - Cardiac failure congestive [Unknown]
  - Fall [Unknown]
  - Hallucination [Recovering/Resolving]
  - Gait disturbance [Unknown]
  - Nausea [Unknown]
  - Oedema [Unknown]
  - Abnormal dreams [Unknown]

NARRATIVE: CASE EVENT DATE: 2017
